FAERS Safety Report 4313337-1 (Version None)
Quarter: 2004Q1

REPORT INFORMATION
  Report Type: 
  Country: None (occurrence: None)
  Receive Date: 20040304
  Receipt Date: 20040224
  Transmission Date: 20041129
  Serious: Yes (Hospitalization)
  Sender: FDA-Public Use
  Company Number: JP-JNJFOC-20040205300

PATIENT
  Age: 82 Year
  Sex: Male

DRUGS (5)
  1. OFLOXACIN [Suspect]
     Indication: URINARY TRACT INFECTION
     Dosage: ORAL
     Route: 048
     Dates: start: 20031201, end: 20031211
  2. DIAMICRON (GLICLAZIDE) [Suspect]
     Indication: DIABETES MELLITUS NON-INSULIN-DEPENDENT
     Dosage: ORAL
     Route: 048
     Dates: start: 20000115, end: 20031209
  3. ACETAMINOPHEN [Suspect]
     Indication: URINARY TRACT INFECTION
     Dosage: ORAL
     Route: 048
     Dates: start: 20031201, end: 20031211
  4. GLUCOPHAGE [Concomitant]
  5. REMINYL [Concomitant]

REACTIONS (10)
  - ASTHENIA [None]
  - BLOOD GLUCOSE DECREASED [None]
  - BODY TEMPERATURE INCREASED [None]
  - CONFUSIONAL STATE [None]
  - GRIMACING [None]
  - INCOHERENT [None]
  - INFLUENZA [None]
  - MEDICATION ERROR [None]
  - RENAL FAILURE [None]
  - TONGUE DISORDER [None]
